FAERS Safety Report 11128609 (Version 1)
Quarter: 2015Q2

REPORT INFORMATION
  Report Type: Spontaneous
  Country: MY (occurrence: MY)
  Receive Date: 20150521
  Receipt Date: 20150521
  Transmission Date: 20150821
  Serious: Yes (Other)
  Sender: FDA-Public Use
  Company Number: MY-PFIZER INC-2015167595

PATIENT

DRUGS (1)
  1. SUTENT [Suspect]
     Active Substance: SUNITINIB MALATE
     Dosage: 50 MG FOR 4 WEEKS ON AND 2 WEEKS OFF

REACTIONS (2)
  - Interstitial lung disease [Not Recovered/Not Resolved]
  - Cough [Not Recovered/Not Resolved]
